FAERS Safety Report 4718887-1 (Version None)
Quarter: 2005Q3

REPORT INFORMATION
  Report Type: 
  Country: None (occurrence: None)
  Receive Date: 20050719
  Receipt Date: 20050705
  Transmission Date: 20060218
  Serious: Yes (Other)
  Sender: FDA-Public Use
  Company Number: USA0507101963

PATIENT
  Age: 63 Year
  Sex: Female

DRUGS (3)
  1. HUMULIN R [Suspect]
     Dates: start: 19850101
  2. NOVOLIN R [Concomitant]
  3. NOVOLOG [Concomitant]

REACTIONS (4)
  - BACK PAIN [None]
  - FEELING ABNORMAL [None]
  - INTERVERTEBRAL DISC PROTRUSION [None]
  - LOSS OF CONSCIOUSNESS [None]
